FAERS Safety Report 6294898-2 (Version None)
Quarter: 2009Q3

REPORT INFORMATION
  Report Type: 
  Country: None (occurrence: None)
  Receive Date: 20090730
  Receipt Date: 20090727
  Transmission Date: 20100115
  Serious: Yes (Hospitalization)
  Sender: FDA-Public Use
  Company Number: A0798747A

PATIENT
  Age: 75 Year
  Sex: Male

DRUGS (4)
  1. ASPIRIN [Suspect]
     Indication: ANTICOAGULANT THERAPY
     Dosage: ORAL
     Route: 048
  2. METOPROLOL TARTRATE [Concomitant]
  3. AMLODIPINE BESYLATE [Concomitant]
  4. PRAVASTATIN [Concomitant]

REACTIONS (1)
  - EPISTAXIS [None]
